FAERS Safety Report 4423806-1 (Version None)
Quarter: 2004Q3

REPORT INFORMATION
  Report Type: 
  Country: None (occurrence: None)
  Receive Date: 20040715
  Receipt Date: 20030731
  Transmission Date: 20050211
  Serious: Yes (Hospitalization)
  Sender: FDA-Public Use
  Company Number: US-JNJFOC-20040505771

PATIENT
  Age: 48 Year
  Sex: Female

DRUGS (2)
  1. MOTRIN IB [Suspect]
     Indication: BACK PAIN
     Dosage: 400-600 MG BID PO PRN
     Route: 048
     Dates: end: 20030101
  2. MULTIVITAMIN [Concomitant]

REACTIONS (1)
  - GASTROINTESTINAL ULCER HAEMORRHAGE [None]
